FAERS Safety Report 19359842 (Version 2)
Quarter: 2021Q2

REPORT INFORMATION
  Report Type: Spontaneous
  Country: US (occurrence: US)
  Receive Date: 20210601
  Receipt Date: 20210603
  Transmission Date: 20210717
  Serious: Yes (Other)
  Sender: FDA-Public Use
  Company Number: US-ELI_LILLY_AND_COMPANY-US202105010940

PATIENT
  Sex: Male

DRUGS (1)
  1. ZYPREXA [Suspect]
     Active Substance: OLANZAPINE
     Indication: PRODUCT USED FOR UNKNOWN INDICATION
     Dosage: UNK UNK, UNKNOWN
     Route: 065

REACTIONS (7)
  - Pancreatic carcinoma [Unknown]
  - Apathy [Unknown]
  - Weight increased [Unknown]
  - Self esteem decreased [Unknown]
  - Sluggishness [Unknown]
  - Type 2 diabetes mellitus [Unknown]
  - Pancreatitis [Unknown]
